FAERS Safety Report 8225545-8 (Version None)
Quarter: 2012Q1

REPORT INFORMATION
  Report Type: 
  Country: None (occurrence: None)
  Receive Date: 20120321
  Receipt Date: 20120306
  Transmission Date: 20120608
  Serious: Yes (Other)
  Sender: FDA-Public Use
  Company Number: CHPA2012US004604

PATIENT
  Age: 75 Year
  Sex: Female

DRUGS (7)
  1. ASPIRIN [Concomitant]
     Dosage: 80 MG, PRN
  2. CALCIUM WITH VITAMIN D [Concomitant]
     Dosage: 600 MG, 2 PER DAY
  3. FOSAMAX [Concomitant]
     Indication: OSTEOPOROSIS
     Dosage: 75 MG, 1 PER WEEK
     Dates: start: 20120106
  4. EXCEDRIN EXTRA STRENGTH TABLETS [Suspect]
     Indication: PAIN
     Dosage: 1 DF, PRN
     Route: 048
  5. IBUPROFEN (ADVIL) [Concomitant]
     Dosage: 3 DF, Q 4-6 HOURS
  6. EXCEDRIN EXTRA STRENGTH TABLETS [Suspect]
     Dosage: UNK , UNK
     Route: 048
  7. DRUG THERAPY NOS [Concomitant]
     Indication: BACK PAIN

REACTIONS (3)
  - BLADDER CANCER [None]
  - UNDERDOSE [None]
  - GASTROOESOPHAGEAL REFLUX DISEASE [None]
